FAERS Safety Report 17399870 (Version 3)
Quarter: 2020Q2

REPORT INFORMATION
  Report Type: Spontaneous
  Country: IT (occurrence: IT)
  Receive Date: 20200211
  Receipt Date: 20200420
  Transmission Date: 20200713
  Serious: Yes (Life-Threatening)
  Sender: FDA-Public Use
  Company Number: IT-TEVA-2020-IT-1183623

PATIENT
  Age: 77 Year
  Sex: Female

DRUGS (2)
  1. METOPROLOL. [Suspect]
     Active Substance: METOPROLOL
     Dosage: 1 DF
     Route: 048
     Dates: start: 20200104, end: 20200104
  2. DUTASTERIDE. [Suspect]
     Active Substance: DUTASTERIDE
     Dosage: 1 DF
     Route: 048
     Dates: start: 20200104, end: 20200104

REACTIONS (3)
  - Vomiting [Recovering/Resolving]
  - Syncope [Recovering/Resolving]
  - Medication error [Recovering/Resolving]

NARRATIVE: CASE EVENT DATE: 20200104
